FAERS Safety Report 4872557-8 (Version None)
Quarter: 2006Q1

REPORT INFORMATION
  Report Type: 
  Country: None (occurrence: None)
  Receive Date: 20060105
  Receipt Date: 20051221
  Transmission Date: 20060701
  Serious: Yes (Other)
  Sender: FDA-Public Use
  Company Number: US-BOEHRINGER INGELHEIM PHARMACEUTICALS, INC.-2005-DE-05607GD

PATIENT
  Sex: Female

DRUGS (4)
  1. NEVIRAPINE [Suspect]
     Indication: HIV INFECTION
  2. ZIDOVUDINE [Suspect]
     Indication: HIV INFECTION
  3. LAMIVUDINE [Suspect]
     Indication: HIV INFECTION
  4. LOPINAVIR/RITONAVIR [Suspect]
     Indication: HIV INFECTION

REACTIONS (4)
  - ADVERSE EVENT [None]
  - BLOOD HIV RNA INCREASED [None]
  - CD4 LYMPHOCYTES DECREASED [None]
  - VIRAL MUTATION IDENTIFIED [None]
